FAERS Safety Report 10675034 (Version 1)
Quarter: 2014Q4

REPORT INFORMATION
  Report Type: Spontaneous
  Country: CA (occurrence: CA)
  Receive Date: 20141224
  Receipt Date: 20141224
  Transmission Date: 20150529
  Serious: Yes (Hospitalization)
  Sender: FDA-Public Use
  Company Number: CA-JNJFOC-20141212733

PATIENT
  Sex: Male

DRUGS (3)
  1. ANTIBIOTIC NOS [Suspect]
     Active Substance: UNSPECIFIED INGREDIENT
     Indication: EYE SWELLING
     Route: 065
  2. OTHER THERAPEUTIC PRODUCT UNSPECIFIED [Suspect]
     Active Substance: UNSPECIFIED INGREDIENT
     Indication: EYE SWELLING
     Route: 065
  3. BENADRYL [Suspect]
     Active Substance: DIPHENHYDRAMINE HYDROCHLORIDE
     Indication: EYE SWELLING
     Route: 065

REACTIONS (2)
  - Staphylococcal skin infection [Recovering/Resolving]
  - Product use issue [Unknown]
